FAERS Safety Report 15951424 (Version 1)
Quarter: 2019Q1

REPORT INFORMATION
  Report Type: Spontaneous
  Country: US (occurrence: US)
  Receive Date: 20190211
  Receipt Date: 20190211
  Transmission Date: 20190417
  Serious: Yes (Other)
  Sender: FDA-Public Use
  Company Number: US-AKORN PHARMACEUTICALS-2019AKN00174

PATIENT
  Age: 26 Year
  Sex: Female
  Weight: 64 kg

DRUGS (4)
  1. MULTIVITAMIN [Concomitant]
     Active Substance: VITAMINS
  2. MYORISAN [Suspect]
     Active Substance: ISOTRETINOIN
     Indication: ACNE
     Dosage: 40 MG, 1X/DAY
     Route: 048
     Dates: start: 20180816, end: 20181212
  3. MYORISAN [Suspect]
     Active Substance: ISOTRETINOIN
     Dosage: 40 MG, 3X/WEEK ON MONDAY, WEDNESDAY, AND FRIDAY
     Route: 048
     Dates: start: 20181213, end: 20181221
  4. UNSPECIFIED BIRTH CONTROL PILL [Concomitant]
     Active Substance: UNSPECIFIED INGREDIENT

REACTIONS (4)
  - Blood cholesterol increased [Recovering/Resolving]
  - Fear [Recovering/Resolving]
  - Blood triglycerides increased [Recovering/Resolving]
  - Off label use [Recovered/Resolved]

NARRATIVE: CASE EVENT DATE: 2018
